FAERS Safety Report 12080585 (Version 1)
Quarter: 2016Q1

REPORT INFORMATION
  Report Type: Spontaneous
  Country: None (occurrence: None)
  Receive Date: 20160212
  Receipt Date: 20160212
  Transmission Date: 20160526
  Serious: No
  Sender: FDA-Public Use
  Company Number: None

PATIENT
  Age: 35 Year
  Sex: Female
  Weight: 70 kg

DRUGS (7)
  1. ARCOXIA [Concomitant]
     Active Substance: ETORICOXIB
  2. TEGRETOL [Concomitant]
     Active Substance: CARBAMAZEPINE
  3. MENOGRAINE [Concomitant]
  4. FOLIC ACID. [Concomitant]
     Active Substance: FOLIC ACID
  5. VITAMIN D [Concomitant]
     Active Substance: CHOLECALCIFEROL
  6. EUTHYROX [Suspect]
     Active Substance: LEVOTHYROXINE SODIUM
     Indication: HYPOTHYROIDISM
     Route: 048
     Dates: start: 20151005, end: 20160115
  7. SYNALEVE [Concomitant]

REACTIONS (4)
  - Anger [None]
  - Crying [None]
  - Alopecia [None]
  - Emotional disorder [None]

NARRATIVE: CASE EVENT DATE: 20160114
